FAERS Safety Report 9995622 (Version 1)
Quarter: 2014Q1

REPORT INFORMATION
  Report Type: Spontaneous
  Country: US (occurrence: US)
  Receive Date: 20140311
  Receipt Date: 20140311
  Transmission Date: 20141002
  Serious: No
  Sender: FDA-Public Use
  Company Number: US-009507513-1402USA013725

PATIENT
  Age: 63 Year
  Sex: Male

DRUGS (1)
  1. MIRALAX [Suspect]
     Indication: BOWEL PREPARATION
     Dosage: UNK, UNKNOWN
     Route: 048
     Dates: start: 20131210

REACTIONS (5)
  - Feeling cold [Recovered/Resolved]
  - Chills [Recovered/Resolved]
  - Body temperature decreased [Recovered/Resolved]
  - Wrong technique in drug usage process [Unknown]
  - Off label use [Unknown]
